FAERS Safety Report 8602793-6 (Version None)
Quarter: 2012Q3

REPORT INFORMATION
  Report Type: 
  Country: None (occurrence: None)
  Receive Date: 20120817
  Receipt Date: 20120809
  Transmission Date: 20120928
  Serious: Yes (Other)
  Sender: FDA-Public Use
  Company Number: CA-ELI_LILLY_AND_COMPANY-CA201208003403

PATIENT
  Age: 71 Year
  Sex: Female

DRUGS (8)
  1. HYDROCHLOROTHIAZIDE [Concomitant]
  2. AMCINONIDE [Concomitant]
  3. ATACAND [Concomitant]
     Dosage: 32 MG, UNK
  4. FORTEO [Suspect]
     Indication: OSTEOPOROSIS
     Dosage: 20 UG, QD
     Route: 058
     Dates: start: 20110804
  5. HYDROXYZINE [Concomitant]
  6. NORVASC [Concomitant]
     Dosage: 10 MG, UNK
  7. AMITRIPTYLINE HCL [Concomitant]
  8. VITAMIN D [Concomitant]
     Dosage: 2000 IU, QD

REACTIONS (2)
  - WEIGHT INCREASED [None]
  - ANKLE OPERATION [None]
